FAERS Safety Report 6646460-7 (Version None)
Quarter: 2010Q1

REPORT INFORMATION
  Report Type: 
  Country: None (occurrence: None)
  Receive Date: 20100322
  Receipt Date: 20100322
  Transmission Date: 20100710
  Serious: Yes (Other)
  Sender: FDA-Public Use
  Company Number: None

PATIENT
  Sex: Female
  Weight: 49.8957 kg

DRUGS (1)
  1. VERAPAMIL [Suspect]
     Indication: ARRHYTHMIA
     Dosage: 120G BID, PRN

REACTIONS (1)
  - NAUSEA [None]
